FAERS Safety Report 12159178 (Version 1)
Quarter: 2016Q1

REPORT INFORMATION
  Report Type: Spontaneous
  Country: US (occurrence: None)
  Receive Date: 20160307
  Receipt Date: 20160307
  Transmission Date: 20160526
  Serious: No
  Sender: FDA-Public Use
  Company Number: None

PATIENT
  Age: 35 Year
  Sex: Female

DRUGS (1)
  1. PRENATE ESSENTIAL [Suspect]
     Active Substance: .ALPHA.-TOCOPHEROL\ASCORBIC ACID\BIOTIN\CALCIUM CARBONATE\CHOLECALCIFEROL\CYANOCOBALAMIN\DOCONEXENT\FERROUS FUMARATE\FOLIC ACID\ICOSAPENT\MAGNESIUM OXIDE\POTASSIUM IODIDE\PYRIDOXINE
     Indication: PRENATAL CARE
     Dosage: TAKE 1 CAPSULE DAILY QD ORAL
     Route: 048
     Dates: start: 20160218, end: 20160218

REACTIONS (3)
  - Product odour abnormal [None]
  - Product quality issue [None]
  - Product physical issue [None]

NARRATIVE: CASE EVENT DATE: 20160218
